FAERS Safety Report 13779938 (Version 3)
Quarter: 2017Q3

REPORT INFORMATION
  Report Type: Report from Study
  Country: US (occurrence: US)
  Receive Date: 20170723
  Receipt Date: 20170817
  Transmission Date: 20171127
  Serious: Yes (Hospitalization, Other)
  Sender: FDA-Public Use
  Company Number: US-AMGEN-USASL2017107771

PATIENT
  Age: 60 Year
  Sex: Female
  Weight: 113.38 kg

DRUGS (3)
  1. ENBREL [Suspect]
     Active Substance: ETANERCEPT
     Indication: ANKYLOSING SPONDYLITIS
     Dosage: 50 MG, QWK
     Route: 058
     Dates: start: 20170531, end: 20170714
  2. HYDROCHLOROTHIAZIDE. [Concomitant]
     Active Substance: HYDROCHLOROTHIAZIDE
     Dosage: UNK
     Dates: start: 2016
  3. NOVOLOG [Concomitant]
     Active Substance: INSULIN ASPART
     Indication: TYPE 2 DIABETES MELLITUS
     Dosage: UNK UNK, QD (DOSE: 48)
     Dates: start: 2016

REACTIONS (6)
  - Dry skin [Unknown]
  - Skin exfoliation [Unknown]
  - Nasal ulcer [Recovered/Resolved]
  - Rash [Recovered/Resolved]
  - Furuncle [Unknown]
  - Lymphadenopathy [Recovered/Resolved]

NARRATIVE: CASE EVENT DATE: 2017
